FAERS Safety Report 6980313-X (Version None)
Quarter: 2010Q3

REPORT INFORMATION
  Report Type: 
  Country: None (occurrence: None)
  Receive Date: 20100914
  Receipt Date: 20100906
  Transmission Date: 20110219
  Serious: Yes (Hospitalization)
  Sender: FDA-Public Use
  Company Number: GB-BRISTOL-MYERS SQUIBB COMPANY-14913669

PATIENT
  Age: 69 Year
  Sex: Male

DRUGS (3)
  1. CETUXIMAB [Suspect]
     Indication: NON-SMALL CELL LUNG CANCER
     Dosage: RECENT DOSE: 16DEC09
     Route: 042
     Dates: start: 20091125
  2. CARBOPLATIN [Suspect]
     Indication: NON-SMALL CELL LUNG CANCER
     Dosage: RECENT DOSE: 16DEC09; 1 DF= 5 AUC DAY 1 OF 21 DAYS CYC
     Route: 042
     Dates: start: 20091125
  3. GEMCITABINE [Suspect]
     Indication: NON-SMALL CELL LUNG CANCER
     Dosage: RECENT DOSE: 16DEC09; DAY 1,8 AND 21 ST DAY IN THE CYCLE
     Route: 042
     Dates: start: 20091125

REACTIONS (1)
  - ANAEMIA [None]
